FAERS Safety Report 15056682 (Version 2)
Quarter: 2018Q3

REPORT INFORMATION
  Report Type: Spontaneous
  Country: US (occurrence: US)
  Receive Date: 20180623
  Receipt Date: 20180705
  Transmission Date: 20181010
  Serious: Yes (Disabling)
  Sender: FDA-Public Use
  Company Number: US-OTSUKA-2018_015824

PATIENT
  Sex: Male

DRUGS (3)
  1. ABILIFY [Suspect]
     Active Substance: ARIPIPRAZOLE
     Dosage: 15 MG, QD
     Route: 065
  2. ABILIFY [Suspect]
     Active Substance: ARIPIPRAZOLE
     Indication: SCHIZOPHRENIA
     Dosage: 5 MG, QD
     Route: 065
     Dates: start: 200704
  3. ABILIFY [Suspect]
     Active Substance: ARIPIPRAZOLE
     Dosage: 30 MG, QD
     Route: 065

REACTIONS (23)
  - Injury [Unknown]
  - Mental impairment [Unknown]
  - Compulsive sexual behaviour [Not Recovered/Not Resolved]
  - Sexual dysfunction [Not Recovered/Not Resolved]
  - Mental disorder [Unknown]
  - Divorced [Unknown]
  - Loss of employment [Unknown]
  - Disability [Unknown]
  - Personal relationship issue [Unknown]
  - Anhedonia [Unknown]
  - Compulsive hoarding [Not Recovered/Not Resolved]
  - Dermatillomania [Not Recovered/Not Resolved]
  - Emotional distress [Unknown]
  - Eating disorder [Not Recovered/Not Resolved]
  - Trichotillomania [Not Recovered/Not Resolved]
  - Economic problem [Unknown]
  - Compulsive shopping [Not Recovered/Not Resolved]
  - Anxiety [Unknown]
  - Obsessive-compulsive disorder [Not Recovered/Not Resolved]
  - Pain [Unknown]
  - Fear [Unknown]
  - Gambling disorder [Not Recovered/Not Resolved]
  - Social problem [Unknown]
